FAERS Safety Report 10023967 (Version 1)
Quarter: 2014Q1

REPORT INFORMATION
  Report Type: Spontaneous
  Country: US (occurrence: None)
  Receive Date: 20140319
  Receipt Date: 20140319
  Transmission Date: 20141002
  Serious: Yes (Other)
  Sender: FDA-Public Use
  Company Number: None

PATIENT
  Age: 22 Year
  Sex: Female
  Weight: 99.79 kg

DRUGS (1)
  1. MYRBETRIQ EXTENDED RELEASE TABLETS [Suspect]
     Indication: HYPERTONIC BLADDER
     Dosage: 25 MG 1 PILL ONCE DAILY BY MOUTH
     Route: 048
     Dates: start: 20140129, end: 20140201

REACTIONS (1)
  - Hypersensitivity [None]
